FAERS Safety Report 6839500-3 (Version None)
Quarter: 2010Q3

REPORT INFORMATION
  Report Type: 
  Country: None (occurrence: None)
  Receive Date: 20100714
  Receipt Date: 20091007
  Transmission Date: 20110219
  Serious: No
  Sender: FDA-Public Use
  Company Number: A0810750A

PATIENT
  Age: 67 Year
  Sex: Female

DRUGS (4)
  1. FLOVENT [Suspect]
     Indication: ASTHMA
     Dosage: 2PUFF TWICE PER DAY
     Route: 055
     Dates: start: 20030101
  2. SIMVASTATIN [Concomitant]
  3. BETAMETHASONE [Concomitant]
     Indication: RASH
  4. LISTERINE [Concomitant]

REACTIONS (1)
  - ORAL FUNGAL INFECTION [None]
